FAERS Safety Report 6975310-4 (Version None)
Quarter: 2010Q3

REPORT INFORMATION
  Report Type: 
  Country: None (occurrence: None)
  Receive Date: 20100910
  Receipt Date: 20090226
  Transmission Date: 20110219
  Serious: No
  Sender: FDA-Public Use
  Company Number: US-WYE-H08369109

PATIENT
  Age: 57 Year
  Sex: Female

DRUGS (1)
  1. ARTANE [Suspect]
     Dosage: UNKNOWN

REACTIONS (3)
  - DRUG EFFECT DECREASED [None]
  - HEADACHE [None]
  - SLUGGISHNESS [None]
